FAERS Safety Report 23232074 (Version 1)
Quarter: 2023Q4

REPORT INFORMATION
  Report Type: Spontaneous
  Country: US (occurrence: None)
  Receive Date: 20231127
  Receipt Date: 20231127
  Transmission Date: 20240110
  Serious: Yes (Other)
  Sender: FDA-Public Use
  Company Number: None

PATIENT
  Sex: Male

DRUGS (2)
  1. TACROLIMUS [Suspect]
     Active Substance: TACROLIMUS
     Indication: Transplant
     Dosage: OTHER FREQUENCY : EVERY MORNING;?
     Route: 048
     Dates: start: 20210224
  2. MYCOPHENOLATE 500MG [Concomitant]

REACTIONS (2)
  - Fall [None]
  - Head injury [None]
